FAERS Safety Report 7394789-X (Version None)
Quarter: 2011Q2

REPORT INFORMATION
  Report Type: 
  Country: None (occurrence: None)
  Receive Date: 20110405
  Receipt Date: 20110310
  Transmission Date: 20111010
  Serious: Yes (Hospitalization)
  Sender: FDA-Public Use
  Company Number: JP-EISAI INC-E2090-01520-CLI-JP

PATIENT
  Sex: Male

DRUGS (8)
  1. MUCODYNE [Concomitant]
     Indication: BRONCHITIS CHRONIC
     Route: 048
     Dates: start: 20090224, end: 20110308
  2. HIRUDOID [Concomitant]
     Indication: ECZEMA
     Dates: start: 20100914, end: 20110308
  3. REQUIP [Concomitant]
     Indication: PARKINSON'S DISEASE
     Route: 048
     Dates: start: 20100720, end: 20110308
  4. ZONISAMIDE [Suspect]
     Indication: PARKINSON'S DISEASE
     Route: 048
     Dates: start: 20110106, end: 20110308
  5. COMTAN [Concomitant]
     Indication: PARKINSON'S DISEASE
     Route: 048
     Dates: start: 20101031, end: 20110308
  6. MADOPAR [Suspect]
     Indication: PARKINSON'S DISEASE
     Route: 048
     Dates: start: 20100608, end: 20110308
  7. MAGLAX [Concomitant]
     Indication: CONSTIPATION
     Dosage: DOSE UNKNOWN
     Route: 048
     Dates: start: 20100525, end: 20110308
  8. LOXONIN [Concomitant]
     Dates: start: 20101125, end: 20110308

REACTIONS (1)
  - GASTROINTESTINAL PERFORATION [None]
